FAERS Safety Report 5045322-9 (Version None)
Quarter: 2006Q3

REPORT INFORMATION
  Report Type: 
  Country: None (occurrence: None)
  Receive Date: 20060707
  Receipt Date: 20060629
  Transmission Date: 20061208
  Serious: Yes (Death, Hospitalization)
  Sender: FDA-Public Use
  Company Number: FR-AVENTIS-200612360FR

PATIENT
  Age: 69 Year
  Sex: Male

DRUGS (10)
  1. TAXOTERE [Suspect]
     Indication: BRONCHIAL CARCINOMA
     Route: 042
     Dates: start: 20060518, end: 20060518
  2. CISPLATIN [Suspect]
     Indication: BRONCHIAL CARCINOMA
     Route: 042
     Dates: start: 20060518, end: 20060518
  3. RADIOTHERAPY [Suspect]
     Indication: BRONCHIAL CARCINOMA
  4. ZOCOR [Concomitant]
     Route: 048
  5. PREVISCAN [Concomitant]
     Route: 048
     Dates: end: 20060521
  6. DAONIL [Concomitant]
     Route: 048
     Dates: end: 20060521
  7. FORADIL [Concomitant]
     Route: 048
  8. THEOSTAT [Concomitant]
     Route: 048
     Dates: end: 20060521
  9. FLIXOTID [Concomitant]
     Route: 048
  10. OGAST [Concomitant]
     Route: 048

REACTIONS (8)
  - ASTHENIA [None]
  - BONE MARROW FAILURE [None]
  - CARDIO-RESPIRATORY DISTRESS [None]
  - DYSPNOEA [None]
  - INCREASED BRONCHIAL SECRETION [None]
  - PLEURAL EFFUSION [None]
  - PLEURISY [None]
  - PYREXIA [None]
